FAERS Safety Report 16750291 (Version 1)
Quarter: 2019Q3

REPORT INFORMATION
  Report Type: Spontaneous
  Country: RO (occurrence: RO)
  Receive Date: 20190828
  Receipt Date: 20190828
  Transmission Date: 20191005
  Serious: Yes (Hospitalization)
  Sender: FDA-Public Use
  Company Number: RO-PFIZER INC-2019365678

PATIENT
  Age: 62 Year
  Sex: Male
  Weight: 92 kg

DRUGS (6)
  1. AMLODIPINA [AMLODIPINE] [Concomitant]
  2. INDAPAMID [Concomitant]
     Active Substance: INDAPAMIDE
  3. SUTENT [Suspect]
     Active Substance: SUNITINIB MALATE
     Indication: RENAL CANCER METASTATIC
     Dosage: 50 MG, UNK
     Dates: start: 20180731
  4. TENAXUM [Concomitant]
     Active Substance: RILMENIDINE
  5. CARVEDILOL. [Concomitant]
     Active Substance: CARVEDILOL
  6. DIUREX [FUROSEMIDE;SPIRONOLACTONE] [Concomitant]

REACTIONS (1)
  - Deep vein thrombosis [Recovered/Resolved]

NARRATIVE: CASE EVENT DATE: 20190721
